FAERS Safety Report 6137594-4 (Version None)
Quarter: 2009Q1

REPORT INFORMATION
  Report Type: 
  Country: None (occurrence: None)
  Receive Date: 20090327
  Receipt Date: 20090327
  Transmission Date: 20090719
  Serious: Yes (Life-Threatening, Other)
  Sender: FDA-Public Use
  Company Number: None

PATIENT
  Sex: Male
  Weight: 86.1834 kg

DRUGS (2)
  1. ENBREL [Suspect]
     Indication: RHEUMATOID ARTHRITIS
     Dosage: 25 MG QW SQ
     Route: 058
     Dates: start: 20031201, end: 20090301
  2. METHOTREXATE [Suspect]
     Dosage: 17.5 MG QW PO
     Route: 048
     Dates: start: 20031201, end: 20090301

REACTIONS (1)
  - TONSIL CANCER [None]
